APPROVED DRUG PRODUCT: VENTOLIN
Active Ingredient: ALBUTEROL SULFATE
Strength: EQ 2MG BASE/5ML **Federal Register determination that product was not discontinued or withdrawn for safety or effectiveness reasons**
Dosage Form/Route: SYRUP;ORAL
Application: N019621 | Product #001
Applicant: GLAXOSMITHKLINE
Approved: Jun 10, 1987 | RLD: No | RS: No | Type: DISCN